FAERS Safety Report 16025823 (Version 1)
Quarter: 2019Q1

REPORT INFORMATION
  Report Type: Spontaneous
  Country: US (occurrence: US)
  Receive Date: 20190302
  Receipt Date: 20190302
  Transmission Date: 20190418
  Serious: Yes (Hospitalization, Other)
  Sender: FDA-Public Use
  Company Number: US-AUROBINDO-AUR-APL-2019-010717

PATIENT

DRUGS (1)
  1. DEXAMETHASONE INJECTION [Suspect]
     Active Substance: DEXAMETHASONE
     Indication: PRODUCT USED FOR UNKNOWN INDICATION
     Dosage: RIGHT L5/S1 TFESI PERFORMED UNDER FLUOROSCOPIC GUIDANCE
     Route: 008

REACTIONS (6)
  - Ischaemia [Recovered/Resolved]
  - Nerve root injury lumbar [Recovered/Resolved]
  - Incorrect route of product administration [Recovered/Resolved]
  - Peroneal nerve palsy [Recovered/Resolved]
  - Micturition urgency [Recovered/Resolved]
  - Product use issue [Recovered/Resolved]
